FAERS Safety Report 10129758 (Version 1)
Quarter: 2014Q2

REPORT INFORMATION
  Report Type: Spontaneous
  Country: TN (occurrence: TN)
  Receive Date: 20140428
  Receipt Date: 20140428
  Transmission Date: 20141212
  Serious: Yes (Other)
  Sender: FDA-Public Use
  Company Number: TN-SA-2014SA054782

PATIENT
  Sex: 0

DRUGS (1)
  1. CEREZYME [Suspect]
     Indication: GAUCHER^S DISEASE
     Route: 042

REACTIONS (2)
  - Hepatomegaly [Unknown]
  - Feeling abnormal [Unknown]
